FAERS Safety Report 22366202 (Version 1)
Quarter: 2023Q2

REPORT INFORMATION
  Report Type: Spontaneous
  Country: US (occurrence: None)
  Receive Date: 20230524
  Receipt Date: 20230524
  Transmission Date: 20230721
  Serious: No
  Sender: FDA-Public Use
  Company Number: None

PATIENT
  Sex: Female

DRUGS (26)
  1. CAPECITABINE [Suspect]
     Active Substance: CAPECITABINE
     Indication: Pancreatic carcinoma
     Dosage: 2T BID PO 7D ON/7D OFF?
     Route: 048
     Dates: start: 202305, end: 20230521
  2. CAPECITABINE [Concomitant]
     Active Substance: CAPECITABINE
  3. ACETAMINOPHEN [Concomitant]
     Active Substance: ACETAMINOPHEN
  4. ALBUTEROL [Concomitant]
     Active Substance: ALBUTEROL
  5. AMLODIPINE [Concomitant]
     Active Substance: AMLODIPINE BESYLATE
  6. ALLOPURINOL [Concomitant]
     Active Substance: ALLOPURINOL
  7. ATORVASTATIN [Concomitant]
     Active Substance: ATORVASTATIN
  8. DICLOFENAC [Concomitant]
     Active Substance: DICLOFENAC
  9. ESTROPIPATE [Concomitant]
     Active Substance: ESTROPIPATE
  10. FEXOFENADINE [Concomitant]
     Active Substance: FEXOFENADINE HYDROCHLORIDE
  11. PANTOPRAZOLE [Concomitant]
     Active Substance: PANTOPRAZOLE
  12. SERTRALINE [Concomitant]
     Active Substance: SERTRALINE HYDROCHLORIDE
  13. ZOLPIDEM [Concomitant]
     Active Substance: ZOLPIDEM TARTRATE
  14. BUSIPRONE [Concomitant]
  15. DRONABINOL [Concomitant]
     Active Substance: DRONABINOL
  16. GABAPENTIN [Concomitant]
     Active Substance: GABAPENTIN
  17. GLIPIZIDE [Concomitant]
     Active Substance: GLIPIZIDE
  18. CREON [Concomitant]
     Active Substance: PANCRELIPASE AMYLASE\PANCRELIPASE LIPASE\PANCRELIPASE PROTEASE
  19. METFORMIN [Concomitant]
     Active Substance: METFORMIN HYDROCHLORIDE
  20. MIRTAZAPINE [Concomitant]
     Active Substance: MIRTAZAPINE
  21. VITAMINS [Concomitant]
     Active Substance: VITAMINS
  22. ONDANSETRON [Concomitant]
     Active Substance: ONDANSETRON
  23. POTASSIUM CHLORIDE [Concomitant]
     Active Substance: POTASSIUM CHLORIDE
  24. PROMETHAZINE [Concomitant]
     Active Substance: PROMETHAZINE HYDROCHLORIDE
  25. MINERALS\VITAMINS [Concomitant]
     Active Substance: MINERALS\VITAMINS
  26. ACARBOSE [Concomitant]
     Active Substance: ACARBOSE

REACTIONS (5)
  - Blood glucose increased [None]
  - Asthenia [None]
  - Oral candidiasis [None]
  - Therapy cessation [None]
  - Mobility decreased [None]
